FAERS Safety Report 4996978-8 (Version None)
Quarter: 2006Q2

REPORT INFORMATION
  Report Type: 
  Country: None (occurrence: None)
  Receive Date: 20060509
  Receipt Date: 20060414
  Transmission Date: 20061013
  Serious: Yes (Hospitalization)
  Sender: FDA-Public Use
  Company Number: PHBS2006TR05484

PATIENT
  Age: 65 Year
  Sex: Female

DRUGS (2)
  1. LESCOL XL [Suspect]
     Dosage: 80 MG/DAY
     Route: 048
     Dates: start: 20060301, end: 20060414
  2. LESCOL [Suspect]
     Dosage: 40 MG/DAY
     Route: 048
     Dates: start: 20060301, end: 20060414

REACTIONS (4)
  - BLOOD CREATINE PHOSPHOKINASE INCREASED [None]
  - MYALGIA [None]
  - PULMONARY OEDEMA [None]
  - RHABDOMYOLYSIS [None]
